FAERS Safety Report 7374633-7 (Version None)
Quarter: 2011Q1

REPORT INFORMATION
  Report Type: 
  Country: None (occurrence: None)
  Receive Date: 20110325
  Receipt Date: 20100524
  Transmission Date: 20110831
  Serious: No
  Sender: FDA-Public Use
  Company Number: US-MYLANLABS-2010S1009251

PATIENT
  Age: 52 Year
  Sex: Male
  Weight: 86.18 kg

DRUGS (3)
  1. WARFARIN [Concomitant]
  2. CILOSTAZOL [Concomitant]
  3. FENTANYL-100 [Suspect]
     Indication: NEURALGIA
     Dosage: CHANGED PATCHES Q3D
     Route: 062
     Dates: start: 20090801

REACTIONS (7)
  - SNEEZING [None]
  - DRUG EFFECT DECREASED [None]
  - ASTHENIA [None]
  - COUGH [None]
  - WEIGHT DECREASED [None]
  - DIARRHOEA [None]
  - PAIN [None]
